FAERS Safety Report 7829462-4 (Version None)
Quarter: 2011Q4

REPORT INFORMATION
  Report Type: 
  Country: None (occurrence: None)
  Receive Date: 20111020
  Receipt Date: 20111006
  Transmission Date: 20120403
  Serious: Yes (Other)
  Sender: FDA-Public Use
  Company Number: DE-ROCHE-1004019

PATIENT
  Age: 57 Year
  Sex: Male

DRUGS (3)
  1. MABTHERA [Suspect]
     Route: 042
     Dates: start: 20110525
  2. MABTHERA [Suspect]
     Route: 042
     Dates: start: 20110608
  3. MABTHERA [Suspect]
     Indication: RHEUMATOID ARTHRITIS
     Route: 042

REACTIONS (3)
  - PERTUSSIS [None]
  - ATRIAL FIBRILLATION [None]
  - MYOCARDITIS [None]
